FAERS Safety Report 17725496 (Version 3)
Quarter: 2023Q2

REPORT INFORMATION
  Report Type: Spontaneous
  Country: US (occurrence: None)
  Receive Date: 20200429
  Receipt Date: 20230629
  Transmission Date: 20230722
  Serious: Yes (Death, Other)
  Sender: FDA-Public Use
  Company Number: 2020SE53818

PATIENT
  Age: 20879 Day
  Sex: Male
  Weight: 52.2 kg

DRUGS (31)
  1. PRILOSEC [Suspect]
     Active Substance: OMEPRAZOLE MAGNESIUM
     Route: 048
     Dates: start: 2010, end: 2017
  2. PRILOSEC [Suspect]
     Active Substance: OMEPRAZOLE MAGNESIUM
     Route: 048
     Dates: start: 199801, end: 201709
  3. NEXIUM [Suspect]
     Active Substance: ESOMEPRAZOLE MAGNESIUM
     Route: 048
     Dates: start: 2010, end: 2017
  4. PREVACID [Suspect]
     Active Substance: LANSOPRAZOLE
     Dates: start: 2010, end: 2017
  5. PREVACID [Suspect]
     Active Substance: LANSOPRAZOLE
     Dates: start: 199801, end: 201709
  6. PREVACID 24 HR [Suspect]
     Active Substance: LANSOPRAZOLE
     Dates: start: 2010, end: 2017
  7. PREVACID 24 HR [Suspect]
     Active Substance: LANSOPRAZOLE
     Dates: start: 199801, end: 201709
  8. PROTONIX [Suspect]
     Active Substance: PANTOPRAZOLE SODIUM
     Dates: start: 2010, end: 2017
  9. PROTONIX [Suspect]
     Active Substance: PANTOPRAZOLE SODIUM
     Dates: start: 199801, end: 201709
  10. FLURAZEPAM [Concomitant]
     Active Substance: FLURAZEPAM HYDROCHLORIDE
  11. EFFEXOR [Concomitant]
     Active Substance: VENLAFAXINE HYDROCHLORIDE
  12. CLONAZEPAM [Concomitant]
     Active Substance: CLONAZEPAM
  13. ACETAMINOPHEN\HYDROCODONE [Concomitant]
     Active Substance: ACETAMINOPHEN\HYDROCODONE
  14. ONDANSETRON [Concomitant]
     Active Substance: ONDANSETRON
  15. AZITHROMYCIN [Concomitant]
     Active Substance: AZITHROMYCIN
  16. QUETIAPINE FUMARATE [Concomitant]
     Active Substance: QUETIAPINE FUMARATE
  17. CYCLOBENZAPRINE [Concomitant]
     Active Substance: CYCLOBENZAPRINE
  18. CARVEDILOL [Concomitant]
     Active Substance: CARVEDILOL
  19. LISINOPRIL [Concomitant]
     Active Substance: LISINOPRIL
  20. MINERAL OIL [Concomitant]
     Active Substance: MINERAL OIL
  21. TRILIPIX [Concomitant]
     Active Substance: FENOFIBRIC ACID
  22. HYDROXYZINE PAMOATE [Concomitant]
     Active Substance: HYDROXYZINE PAMOATE
  23. PROMETHAZINE [Concomitant]
     Active Substance: PROMETHAZINE HYDROCHLORIDE
  24. MENTHOL [Concomitant]
     Active Substance: MENTHOL
  25. FISH OIL [Concomitant]
     Active Substance: FISH OIL
  26. SERTRALINE [Concomitant]
     Active Substance: SERTRALINE HYDROCHLORIDE
  27. DOCUSATE SODIUM [Concomitant]
     Active Substance: DOCUSATE SODIUM
  28. PHENELZINE [Concomitant]
     Active Substance: PHENELZINE
  29. ETODOLAC [Concomitant]
     Active Substance: ETODOLAC
  30. AUGMENTIN [Concomitant]
     Active Substance: AMOXICILLIN\CLAVULANATE POTASSIUM
  31. AMMONIUM CHLORIDE\DEXTROMETHORPHAN\SODIUM CITRATE [Concomitant]
     Active Substance: AMMONIUM CHLORIDE\DEXTROMETHORPHAN\SODIUM CITRATE

REACTIONS (5)
  - Death [Fatal]
  - Chronic kidney disease [Unknown]
  - Acute kidney injury [Unknown]
  - Renal failure [Unknown]
  - Rebound acid hypersecretion [Unknown]

NARRATIVE: CASE EVENT DATE: 20170706
